FAERS Safety Report 7061683-3 (Version None)
Quarter: 2010Q4

REPORT INFORMATION
  Report Type: 
  Country: None (occurrence: None)
  Receive Date: 20101026
  Receipt Date: 20101020
  Transmission Date: 20110411
  Serious: Yes (Other)
  Sender: FDA-Public Use
  Company Number: ES-ROXANE LABORATORIES, INC.-2010-RO-01403RO

PATIENT
  Age: 75 Year
  Sex: Female

DRUGS (2)
  1. MERCAPTOPURINE [Suspect]
     Indication: AUTOIMMUNE HEPATITIS
     Dosage: 50 MG
  2. GLUCOCORTICOIDS [Suspect]
     Indication: AUTOIMMUNE HEPATITIS
     Dosage: 5 MG

REACTIONS (1)
  - VISCERAL LEISHMANIASIS [None]
